FAERS Safety Report 13055575 (Version 1)
Quarter: 2016Q4

REPORT INFORMATION
  Report Type: Spontaneous
  Country: RU (occurrence: RU)
  Receive Date: 20161222
  Receipt Date: 20161222
  Transmission Date: 20170207
  Serious: Yes (Hospitalization, Other)
  Sender: FDA-Public Use
  Company Number: RU-BAYER-2016-196643

PATIENT
  Age: 26 Year
  Sex: Female

DRUGS (1)
  1. YAZ PLUS [Suspect]
     Active Substance: DROSPIRENONE\ETHINYL ESTRADIOL
     Indication: CONTRACEPTION
     Dosage: UNK
     Route: 048
     Dates: start: 201602, end: 201608

REACTIONS (11)
  - Migraine [None]
  - Superior sagittal sinus thrombosis [None]
  - Metabolic encephalopathy [None]
  - Paranasal cyst [None]
  - Ischaemic stroke [None]
  - Jugular vein thrombosis [None]
  - Headache [None]
  - Vascular encephalopathy [None]
  - Lacunar infarction [None]
  - Transverse sinus thrombosis [None]
  - Cerebral venous thrombosis [None]

NARRATIVE: CASE EVENT DATE: 201605
